FAERS Safety Report 12851846 (Version 1)
Quarter: 2016Q4

REPORT INFORMATION
  Report Type: Spontaneous
  Country: US (occurrence: US)
  Receive Date: 20161014
  Receipt Date: 20161014
  Transmission Date: 20170207
  Serious: Yes (Disabling)
  Sender: FDA-Public Use
  Company Number: None

PATIENT
  Age: 65 Year
  Sex: Female
  Weight: 60.3 kg

DRUGS (5)
  1. VITAMIN D [Concomitant]
     Active Substance: CHOLECALCIFEROL
  2. CALCIUM [Concomitant]
     Active Substance: CALCIUM
  3. ESSENTIAL OILS. [Concomitant]
     Active Substance: ESSENTIAL OILS
  4. RECLAST [Suspect]
     Active Substance: ZOLEDRONIC ACID
     Indication: OSTEOPOROSIS
     Dosage: ?          OTHER FREQUENCY:ONE TIME PER YEAR;?
     Route: 042
     Dates: start: 20160923, end: 20160923
  5. PREDNISONE. [Concomitant]
     Active Substance: PREDNISONE

REACTIONS (20)
  - Nausea [None]
  - Joint swelling [None]
  - Pain in extremity [None]
  - Myalgia [None]
  - Back pain [None]
  - Motor dysfunction [None]
  - Pyrexia [None]
  - Arthralgia [None]
  - Tremor [None]
  - Hyperhidrosis [None]
  - Chills [None]
  - Diarrhoea [None]
  - Musculoskeletal stiffness [None]
  - Abasia [None]
  - Pallor [None]
  - Erythema [None]
  - Headache [None]
  - Decreased appetite [None]
  - Urine output decreased [None]
  - Asthenia [None]

NARRATIVE: CASE EVENT DATE: 20160923
